FAERS Safety Report 16540102 (Version 2)
Quarter: 2019Q3

REPORT INFORMATION
  Report Type: Spontaneous
  Country: CH (occurrence: CH)
  Receive Date: 20190708
  Receipt Date: 20190715
  Transmission Date: 20191004
  Serious: Yes (Other)
  Sender: FDA-Public Use
  Company Number: CH-009507513-1905CHE009630

PATIENT
  Age: 62 Year
  Sex: Female
  Weight: 71 kg

DRUGS (7)
  1. ASPIRIN. [Concomitant]
     Active Substance: ASPIRIN
     Indication: CORONARY ARTERY DISEASE
     Dosage: 100 (UNITS NOT REPORTED),UNK
     Dates: start: 2013
  2. METO ZEROK [Concomitant]
     Active Substance: METOPROLOL SUCCINATE
     Indication: HYPERTENSION
     Dosage: 2X50 (UNITS NOT REPORTED), UNK
     Dates: start: 2013
  3. ATORVASTATIN [Concomitant]
     Active Substance: ATORVASTATIN
     Indication: CORONARY ARTERY DISEASE
     Dosage: 10 (UNITS NOT REPORTED), UNK
     Dates: start: 2013
  4. COVERSUM COMBI [Concomitant]
     Active Substance: INDAPAMIDE
     Indication: HYPERTENSION
     Dosage: 5/1.25 (UNITS NOT REPORTED)
     Dates: start: 2013
  5. AERIUS (DESLORATADINE) [Suspect]
     Active Substance: DESLORATADINE
     Indication: URTICARIA
     Dosage: 5 MILLIGRAM, QD
     Route: 048
     Dates: start: 20190410, end: 20190425
  6. COVERSUM [Concomitant]
     Active Substance: PERINDOPRIL
  7. KALCIPOS D3 [Concomitant]
     Dosage: 500/800 (UNITS NOT REPORTED), UNK
     Dates: start: 2013

REACTIONS (3)
  - Palpitations [Unknown]
  - Extrasystoles [Recovered/Resolved]
  - Ventricular extrasystoles [Recovered/Resolved]

NARRATIVE: CASE EVENT DATE: 2019
